FAERS Safety Report 4369949-2 (Version None)
Quarter: 2004Q2

REPORT INFORMATION
  Report Type: 
  Country: None (occurrence: None)
  Receive Date: 20040527
  Receipt Date: 20040511
  Transmission Date: 20050107
  Serious: Yes (Death, Hospitalization)
  Sender: FDA-Public Use
  Company Number: EWC040539249

PATIENT
  Age: 62 Year
  Sex: Male

DRUGS (9)
  1. GEMZAR [Suspect]
     Indication: NON-SMALL CELL LUNG CANCER
     Dosage: 1250 MG/M2 OTHER
     Route: 050
     Dates: start: 20030827, end: 20030917
  2. CARBOPLATIN [Suspect]
     Indication: NON-SMALL CELL LUNG CANCER
     Dates: start: 20030827, end: 20030917
  3. ACETAMINOPHEN [Concomitant]
  4. METFORMIN [Concomitant]
  5. PAROXETINE HCL [Concomitant]
  6. PERINDOPRIL [Concomitant]
  7. INDAPAMIDE [Concomitant]
  8. PRAVASTATIN [Concomitant]
  9. PERSANTINE [Concomitant]

REACTIONS (3)
  - DYSPNOEA [None]
  - MYOCARDIAL INFARCTION [None]
  - VENTRICULAR ARRHYTHMIA [None]
